FAERS Safety Report 10082976 (Version 1)
Quarter: 2014Q2

REPORT INFORMATION
  Report Type: Spontaneous
  Country: BR (occurrence: BR)
  Receive Date: 20140417
  Receipt Date: 20140417
  Transmission Date: 20141212
  Serious: Yes (Other)
  Sender: FDA-Public Use
  Company Number: BR-PFIZER INC-2014101892

PATIENT
  Age: 71 Year
  Sex: Female
  Weight: 58 kg

DRUGS (3)
  1. XALATAN [Suspect]
     Indication: GLAUCOMA
     Dosage: 1 GTT IN EACH EYE (3UG), 1X/DAY
     Route: 047
     Dates: start: 201106, end: 20140409
  2. XALATAN [Suspect]
     Indication: CATARACT
  3. AZORGA [Concomitant]
     Indication: GLAUCOMA
     Dosage: 1 GTT (IN EACH EYE), 2X/DAY

REACTIONS (2)
  - Cataract [Unknown]
  - Glaucoma [Unknown]
